FAERS Safety Report 19194815 (Version 1)
Quarter: 2021Q2

REPORT INFORMATION
  Report Type: Spontaneous
  Country: US (occurrence: US)
  Receive Date: 20210429
  Receipt Date: 20210429
  Transmission Date: 20210717
  Serious: Yes (Disabling)
  Sender: FDA-Public Use
  Company Number: None

PATIENT
  Age: 65 Year
  Sex: Female
  Weight: 45.9 kg

DRUGS (2)
  1. ASPIRIN. [Concomitant]
     Active Substance: ASPIRIN
  2. GUAIFENESIN. [Suspect]
     Active Substance: GUAIFENESIN
     Indication: COUGH
     Dosage: ?          QUANTITY:1 TEASPOON(S);?
     Route: 048
     Dates: start: 20171015, end: 20190615

REACTIONS (9)
  - Recalled product administered [None]
  - Diarrhoea [None]
  - Product contamination [None]
  - Decreased appetite [None]
  - Pain [None]
  - Weight decreased [None]
  - Dyspnoea [None]
  - Emotional distress [None]
  - Cardiac disorder [None]

NARRATIVE: CASE EVENT DATE: 20190115
